FAERS Safety Report 9304414 (Version 1)
Quarter: 2013Q2

REPORT INFORMATION
  Report Type: Other
  Country: NL (occurrence: NL)
  Receive Date: 20130522
  Receipt Date: 20130522
  Transmission Date: 20140414
  Serious: Yes (Death)
  Sender: FDA-Public Use
  Company Number: NL-WATSON-2013-09439

PATIENT
  Age: 41 Year
  Sex: Male

DRUGS (5)
  1. DISULFIRAM (WATSON LABORATORIES) [Suspect]
     Indication: ALCOHOLISM
     Dosage: 750 MG, UNK
     Route: 048
     Dates: start: 20130403
  2. SYMBICORT [Suspect]
     Indication: ASTHMA
     Dosage: 1 DF, DAILY
     Route: 055
     Dates: start: 2012
  3. CAMPRAL EC [Concomitant]
     Indication: PRODUCT USED FOR UNKNOWN INDICATION
     Dosage: 666 MG, TID
  4. THIAMINE [Concomitant]
     Indication: PRODUCT USED FOR UNKNOWN INDICATION
     Route: 065
  5. THIAMINE [Concomitant]
     Dosage: 25 MG, TID
     Route: 065

REACTIONS (1)
  - Chest pain [Fatal]
